FAERS Safety Report 9603042 (Version 1)
Quarter: 2013Q4

REPORT INFORMATION
  Report Type: Spontaneous
  Country: US (occurrence: US)
  Receive Date: 20131007
  Receipt Date: 20131007
  Transmission Date: 20140711
  Serious: Yes (Death, Other)
  Sender: FDA-Public Use
  Company Number: US-ASTRAZENECA-2013SE73815

PATIENT
  Age: 73 Year
  Sex: Male
  Weight: 99.8 kg

DRUGS (2)
  1. SEROQUEL [Suspect]
     Indication: ANXIETY
     Route: 048
  2. SEROQUEL [Suspect]
     Indication: SEDATION
     Route: 048

REACTIONS (11)
  - Death [Fatal]
  - Adverse event [Unknown]
  - Diabetic blindness [Unknown]
  - Vascular dementia [Unknown]
  - Speech disorder [Unknown]
  - Weight decreased [Unknown]
  - Staphylococcal infection [Unknown]
  - Dementia [Unknown]
  - Dysphagia [Unknown]
  - Drooling [Unknown]
  - Off label use [Unknown]
